APPROVED DRUG PRODUCT: AMIKACIN SULFATE
Active Ingredient: AMIKACIN SULFATE
Strength: EQ 250MG BASE/ML
Dosage Form/Route: INJECTABLE;INJECTION
Application: A063266 | Product #001
Applicant: ABBOTT LABORATORIES HOSP PRODUCTS DIV
Approved: Oct 31, 1994 | RLD: No | RS: No | Type: DISCN